FAERS Safety Report 15738671 (Version 1)
Quarter: 2018Q4

REPORT INFORMATION
  Report Type: Spontaneous
  Country: JP (occurrence: JP)
  Receive Date: 20181219
  Receipt Date: 20181219
  Transmission Date: 20190205
  Serious: Yes (Hospitalization)
  Sender: FDA-Public Use
  Company Number: JP-TEVA-2018-JP-006862J

PATIENT
  Age: 47 Year
  Sex: Male

DRUGS (1)
  1. ADEFURONIC ZUPO 50 [Suspect]
     Active Substance: DICLOFENAC SODIUM
     Indication: PRODUCT USED FOR UNKNOWN INDICATION
     Dosage: UNKNOWN DOSE
     Route: 065
     Dates: start: 201706, end: 201707

REACTIONS (1)
  - Blood creatine phosphokinase increased [Unknown]
